FAERS Safety Report 9674685 (Version 1)
Quarter: 2013Q4

REPORT INFORMATION
  Report Type: Spontaneous
  Country: US (occurrence: None)
  Receive Date: 20131106
  Receipt Date: 20131106
  Transmission Date: 20140711
  Serious: Yes (Disabling)
  Sender: FDA-Public Use
  Company Number: None

PATIENT
  Age: 45 Year
  Sex: Female

DRUGS (1)
  1. SULFAMETHOXAZOLE [Suspect]
     Route: 048
     Dates: start: 20131018, end: 20131022

REACTIONS (4)
  - Nausea [None]
  - Headache [None]
  - Arthralgia [None]
  - No therapeutic response [None]
